FAERS Safety Report 11774479 (Version 2)
Quarter: 2015Q4

REPORT INFORMATION
  Report Type: Spontaneous
  Country: US (occurrence: US)
  Receive Date: 20151124
  Receipt Date: 20151202
  Transmission Date: 20160304
  Serious: Yes (Disabling, Other)
  Sender: FDA-Public Use
  Company Number: US-PFIZER INC-2015398214

PATIENT
  Sex: Female

DRUGS (1)
  1. DEPO-MEDROL [Suspect]
     Active Substance: METHYLPREDNISOLONE ACETATE
     Indication: INTERVERTEBRAL DISC DEGENERATION
     Dosage: UNK
     Route: 008

REACTIONS (6)
  - Cerebrospinal fluid leakage [Unknown]
  - Arachnoiditis [Unknown]
  - Suicidal ideation [Unknown]
  - Product use issue [Unknown]
  - Drug ineffective [Unknown]
  - Stress [Unknown]
